FAERS Safety Report 5422759-7 (Version None)
Quarter: 2007Q3

REPORT INFORMATION
  Report Type: 
  Country: None (occurrence: None)
  Receive Date: 20070822
  Receipt Date: 20070511
  Transmission Date: 20080115
  Serious: No
  Sender: FDA-Public Use
  Company Number: US-BOEHRINGER INGELHEIM PHARMACEUTICALS, INC.-2007-BP-02066BP

PATIENT
  Sex: Male

DRUGS (24)
  1. MIRAPEX [Suspect]
     Indication: FIBROMYALGIA
     Route: 048
     Dates: start: 20031113, end: 20050101
  2. NEXIUM [Concomitant]
     Dates: start: 20031201, end: 20040101
  3. NEURONTIN [Concomitant]
     Dates: start: 20020901
  4. TRAZODONE HCL [Concomitant]
     Dates: start: 20030901, end: 20040101
  5. TOPAMAX [Concomitant]
     Indication: MIGRAINE
     Dates: start: 20040101
  6. ATIVAN [Concomitant]
     Indication: SLEEP DISORDER
     Dates: start: 20040301
  7. ZOLOFT [Concomitant]
     Indication: ANXIETY
     Dates: start: 20040401
  8. PROVIGIL [Concomitant]
     Indication: FATIGUE
     Dates: start: 20040701
  9. HYDROCODONE BITARTRATE + ACETAMINOPHEN [Concomitant]
     Route: 048
     Dates: start: 20020501
  10. PERCOCET [Concomitant]
     Indication: PAIN
     Route: 048
     Dates: start: 20030201
  11. OMEPRAZOLE [Concomitant]
     Route: 048
     Dates: start: 20041001
  12. XANAX [Concomitant]
     Route: 048
     Dates: start: 20050501
  13. BEXTRA [Concomitant]
     Route: 048
  14. AXERT [Concomitant]
     Indication: MIGRAINE
     Route: 048
     Dates: start: 20030601
  15. SKELAXIN [Concomitant]
     Indication: MUSCLE SPASMS
     Route: 048
     Dates: start: 20001001
  16. FLEXERIL [Concomitant]
     Indication: MUSCLE SPASMS
     Route: 048
     Dates: start: 20030801
  17. AMBIEN [Concomitant]
     Indication: SOMNOLENCE
     Route: 048
     Dates: start: 20021201
  18. TYLENOL #3 [Concomitant]
     Indication: PAIN
     Route: 048
     Dates: start: 20030201
  19. MAXALT [Concomitant]
     Dates: start: 20020201
  20. LIDODERM [Concomitant]
     Indication: PAIN
     Route: 061
     Dates: start: 20030301
  21. DIAZEPAM [Concomitant]
     Route: 048
     Dates: start: 20020101
  22. MULTI-VITAMIN [Concomitant]
  23. TRAMADOL HCL [Concomitant]
  24. RELPAX [Concomitant]

REACTIONS (5)
  - ECONOMIC PROBLEM [None]
  - EMOTIONAL DISTRESS [None]
  - INJURY [None]
  - OBSESSIVE-COMPULSIVE DISORDER [None]
  - PATHOLOGICAL GAMBLING [None]
